FAERS Safety Report 19280514 (Version 3)
Quarter: 2021Q3

REPORT INFORMATION
  Report Type: Report from Study
  Country: MY (occurrence: MY)
  Receive Date: 20210520
  Receipt Date: 20210903
  Transmission Date: 20211014
  Serious: Yes (Death)
  Sender: FDA-Public Use
  Company Number: MY-CELGENEUS-MYS-20210400710

PATIENT
  Age: 35 Year
  Sex: Female
  Weight: 52.2 kg

DRUGS (13)
  1. DIAMICRON [Concomitant]
     Active Substance: GLICLAZIDE
     Indication: DIABETES MELLITUS
     Route: 065
     Dates: start: 20120522
  2. FOLIC ACID. [Concomitant]
     Active Substance: FOLIC ACID
     Indication: ANAEMIA PROPHYLAXIS
     Dosage: 5 MILLIGRAM
     Route: 048
     Dates: start: 20130915
  3. PENICILLIN [Concomitant]
     Active Substance: PENICILLIN
     Indication: PROPHYLAXIS
     Dosage: 250 MILLIGRAM
     Route: 065
     Dates: start: 20140217
  4. CONJUGATED ESTROGENS [Concomitant]
     Active Substance: ESTROGENS, CONJUGATED
     Indication: AMENORRHOEA
     Dosage: 0.65?2.5 MILLIGRAM
     Route: 048
     Dates: start: 20080210
  5. AZOPT [Concomitant]
     Active Substance: BRINZOLAMIDE
     Indication: PROPHYLAXIS
     Dosage: 1 OTHER DROP
     Route: 065
     Dates: start: 20120713
  6. SIMVASTATIN. [Concomitant]
     Active Substance: SIMVASTATIN
     Indication: HYPERLIPIDAEMIA
     Dosage: 20 MILLIGRAM
     Route: 048
     Dates: start: 2011, end: 20170810
  7. ASPIRIN. [Concomitant]
     Active Substance: ASPIRIN
     Indication: PROPHYLAXIS
     Dosage: 100 MILLIGRAM
     Route: 048
     Dates: start: 20090811
  8. ALPHAGAN P [Concomitant]
     Active Substance: BRIMONIDINE TARTRATE
     Indication: GLAUCOMA
     Dosage: 1 OTHER DROP
     Route: 065
     Dates: start: 20120613
  9. SIMVASTATIN. [Concomitant]
     Active Substance: SIMVASTATIN
     Dosage: 10 MILLIGRAM
     Route: 048
     Dates: start: 20170322
  10. NORETHISTERONE [Concomitant]
     Active Substance: NORETHINDRONE
     Indication: HORMONE REPLACEMENT THERAPY
     Route: 065
     Dates: start: 20051014
  11. CONJUGATED ESTROGENS [Concomitant]
     Active Substance: ESTROGENS, CONJUGATED
     Indication: PITUITARY TUMOUR BENIGN
     Route: 065
     Dates: start: 20130716
  12. LUSPATERCEPT. [Suspect]
     Active Substance: LUSPATERCEPT
     Indication: THALASSAEMIA ALPHA
     Dosage: .0476 MILLIGRAM
     Route: 058
     Dates: start: 20161223, end: 20170519
  13. METFORMIN [Concomitant]
     Active Substance: METFORMIN HYDROCHLORIDE
     Indication: HORMONE REPLACEMENT THERAPY
     Route: 065
     Dates: start: 20010222

REACTIONS (1)
  - Pneumonia [Fatal]

NARRATIVE: CASE EVENT DATE: 20210203
